FAERS Safety Report 5909144-6 (Version None)
Quarter: 2008Q4

REPORT INFORMATION
  Report Type: 
  Country: None (occurrence: None)
  Receive Date: 20081001
  Receipt Date: 20080919
  Transmission Date: 20090506
  Serious: Yes (Hospitalization)
  Sender: FDA-Public Use
  Company Number: RENA-1000259

PATIENT
  Age: 73 Year
  Sex: Male

DRUGS (9)
  1. RENAGEL [Suspect]
     Indication: HYPERPHOSPHATAEMIA
  2. TAMIFLU (OSELTAMIVIR PHOSPHATE) CAPSULE [Suspect]
     Indication: INFLUENZA
     Dosage: 75 MG, QD, ORAL
     Route: 048
     Dates: start: 20080801, end: 20080802
  3. ACETAMINOPHEN [Concomitant]
  4. CIGULANCOAT (NICORANDIL) UNKNOWN [Concomitant]
  5. PODONIN S (LEVOGLUTAMIDE, SODIUM GUALENATE) UNKNOWN [Concomitant]
  6. GASMOTIN (MOSAPRIDE CITRATE) UNKNOWN [Concomitant]
  7. TAKEPRON (LANSOPRAZOLE) UNKNOWN [Concomitant]
  8. CEROCRAL (IFENPRODIL TARTRATE) UNKNOWN [Concomitant]
  9. OLMETEC (OLMESARTAN MEDOXOMIL) UNKNOWN [Concomitant]

REACTIONS (5)
  - ABNORMAL BEHAVIOUR [None]
  - GAIT DISTURBANCE [None]
  - INFLUENZA [None]
  - OXYGEN SATURATION DECREASED [None]
  - RESTLESSNESS [None]
